FAERS Safety Report 8616400-X (Version None)
Quarter: 2012Q3

REPORT INFORMATION
  Report Type: 
  Country: None (occurrence: None)
  Receive Date: 20120823
  Receipt Date: 20120810
  Transmission Date: 20120928
  Serious: Yes (Other)
  Sender: FDA-Public Use
  Company Number: JP-JNJFOC-20120606457

PATIENT
  Age: 60 Year
  Sex: Male

DRUGS (2)
  1. RIUP 1% [Suspect]
     Indication: ALOPECIA
     Route: 061
     Dates: start: 20110901
  2. RIUP 1% [Suspect]
     Route: 061

REACTIONS (1)
  - RETINAL TEAR [None]
